FAERS Safety Report 5317769-4 (Version None)
Quarter: 2007Q2

REPORT INFORMATION
  Report Type: 
  Country: None (occurrence: None)
  Receive Date: 20070502
  Receipt Date: 20070502
  Transmission Date: 20071010
  Serious: Yes (Death)
  Sender: FDA-Public Use
  Company Number: None

PATIENT
  Age: 3 Year
  Sex: Female
  Weight: 13.6079 kg

DRUGS (1)
  1. ELIDEL [Suspect]
     Indication: SKIN IRRITATION
     Dosage: FACIAL CREAM AND FOR RASHES 2-3 TIMES DAILY
     Dates: start: 20020101, end: 20040101

REACTIONS (7)
  - ACUTE LEUKAEMIA [None]
  - INFLUENZA [None]
  - MALAISE [None]
  - NASOPHARYNGITIS [None]
  - ORGAN FAILURE [None]
  - PHARYNGITIS STREPTOCOCCAL [None]
  - TRANSPLANT [None]
